FAERS Safety Report 5307106-3 (Version None)
Quarter: 2007Q2

REPORT INFORMATION
  Report Type: 
  Country: None (occurrence: None)
  Receive Date: 20070425
  Receipt Date: 20070416
  Transmission Date: 20071010
  Serious: Yes (Death, Hospitalization)
  Sender: FDA-Public Use
  Company Number: FR-GENENTECH-237506

PATIENT
  Age: 70 Year
  Sex: Male

DRUGS (1)
  1. MABTHERA [Suspect]
     Indication: WALDENSTROM'S MACROGLOBULINAEMIA
     Dosage: 600 MG, UNK
     Route: 042
     Dates: start: 20070117

REACTIONS (5)
  - DRUG RESISTANCE [None]
  - LUNG DISORDER [None]
  - OFF LABEL USE [None]
  - PULMONARY FIBROSIS [None]
  - WALDENSTROM'S MACROGLOBULINAEMIA [None]
